FAERS Safety Report 8416516-7 (Version None)
Quarter: 2012Q2

REPORT INFORMATION
  Report Type: 
  Country: None (occurrence: None)
  Receive Date: 20120606
  Receipt Date: 20111223
  Transmission Date: 20120825
  Serious: Yes (Death)
  Sender: FDA-Public Use
  Company Number: US-GLAXOSMITHKLINE-A0959375A

PATIENT
  Age: 61 Year
  Sex: Female

DRUGS (1)
  1. HYCAMTIN [Suspect]
     Indication: LUNG NEOPLASM MALIGNANT
     Dosage: 4MG CYCLIC
     Route: 048

REACTIONS (3)
  - DEATH [None]
  - VOMITING [None]
  - WEIGHT DECREASED [None]
